FAERS Safety Report 8548809-7 (Version None)
Quarter: 2012Q3

REPORT INFORMATION
  Report Type: 
  Country: None (occurrence: None)
  Receive Date: 20120730
  Receipt Date: 20120724
  Transmission Date: 20120928
  Serious: Yes (Death)
  Sender: FDA-Public Use
  Company Number: US-US-EMD SERONO, INC.-7147642

PATIENT
  Sex: Female

DRUGS (2)
  1. NOVANTRONE [Concomitant]
     Indication: MULTIPLE SCLEROSIS
     Dates: start: 20060928
  2. REBIF [Suspect]
     Indication: MULTIPLE SCLEROSIS
     Route: 058
     Dates: start: 20040331

REACTIONS (1)
  - DEATH [None]
